FAERS Safety Report 19417971 (Version 1)
Quarter: 2021Q2

REPORT INFORMATION
  Report Type: Report from Study
  Country: CO (occurrence: CO)
  Receive Date: 20210615
  Receipt Date: 20210615
  Transmission Date: 20210717
  Serious: Yes (Other)
  Sender: FDA-Public Use
  Company Number: CO-COLLEGIUM PHARMACEUTICAL, INC.-2021CGM00692

PATIENT
  Age: 28 Year
  Sex: Female

DRUGS (2)
  1. TAPENTADOL [Suspect]
     Active Substance: TAPENTADOL
     Indication: NEURALGIA
  2. TAPENTADOL [Suspect]
     Active Substance: TAPENTADOL
     Indication: PAIN
     Dosage: 50 MG, EVERY 12 HOURS

REACTIONS (1)
  - Intervertebral disc operation [Unknown]

NARRATIVE: CASE EVENT DATE: 20210521
